FAERS Safety Report 5908673-9 (Version None)
Quarter: 2008Q3

REPORT INFORMATION
  Report Type: 
  Country: None (occurrence: None)
  Receive Date: 20080929
  Receipt Date: 20080915
  Transmission Date: 20090109
  Serious: Yes (Hospitalization)
  Sender: FDA-Public Use
  Company Number: 238785J08USA

PATIENT
  Age: 60 Year
  Sex: Female
  Weight: 49.9 kg

DRUGS (4)
  1. REBIF [Suspect]
     Indication: MULTIPLE SCLEROSIS
     Dosage: SUBCUTANEOUS
     Route: 058
     Dates: start: 20060801, end: 20070801
  2. ZANAFLEX [Concomitant]
  3. PROVIGIL [Concomitant]
  4. OTHER UNSPECIFIED MEDICATION (ALL OTHER THERAPEUTIC PRODUCTS) [Concomitant]

REACTIONS (5)
  - CYSTITIS [None]
  - INFECTION [None]
  - LEUKOPENIA [None]
  - MOUTH ULCERATION [None]
  - PYREXIA [None]
